FAERS Safety Report 10873520 (Version 1)
Quarter: 2015Q1

REPORT INFORMATION
  Report Type: Spontaneous
  Country: US (occurrence: None)
  Receive Date: 20150223
  Receipt Date: 20150223
  Transmission Date: 20150721
  Serious: Yes (Hospitalization)
  Sender: FDA-Public Use
  Company Number: None

PATIENT
  Age: 37 Year
  Sex: Female
  Weight: 69.4 kg

DRUGS (1)
  1. NAPROXEN. [Suspect]
     Active Substance: NAPROXEN
     Indication: GASTROINTESTINAL PAIN
     Route: 048

REACTIONS (3)
  - Gastrointestinal haemorrhage [None]
  - Helicobacter test positive [None]
  - Haematemesis [None]

NARRATIVE: CASE EVENT DATE: 20150218
